FAERS Safety Report 4894108-4 (Version None)
Quarter: 2006Q1

REPORT INFORMATION
  Report Type: 
  Country: None (occurrence: None)
  Receive Date: 20060127
  Receipt Date: 20050726
  Transmission Date: 20060701
  Serious: No
  Sender: FDA-Public Use
  Company Number: S05-USA-03433-01

PATIENT
  Sex: Male

DRUGS (6)
  1. WELLBUTRIN [Suspect]
     Indication: DRUG USE FOR UNKNOWN INDICATION
     Dosage: 200MG TWICE PER DAY
     Route: 048
  2. CITALOPRAM HYDROBROMIDE [Suspect]
     Indication: DRUG USE FOR UNKNOWN INDICATION
     Dosage: 40MG PER DAY
     Route: 048
  3. RITONAVIR [Concomitant]
  4. SAQUINAVIR [Concomitant]
  5. LAMIVUDINE [Concomitant]
     Route: 048
  6. VIREAD [Concomitant]

REACTIONS (2)
  - FATIGUE [None]
  - LIBIDO DECREASED [None]
